FAERS Safety Report 7304005-2 (Version None)
Quarter: 2011Q1

REPORT INFORMATION
  Report Type: 
  Country: None (occurrence: None)
  Receive Date: 20110221
  Receipt Date: 20110208
  Transmission Date: 20110831
  Serious: Yes (Death, Life-Threatening, Hospitalization, Disabling)
  Sender: FDA-Public Use
  Company Number: US-MERCK-1012USA01729

PATIENT
  Age: 55 Year
  Sex: Male
  Weight: 91 kg

DRUGS (6)
  1. DECADRON [Suspect]
     Route: 048
     Dates: start: 20100701
  2. CLONAZEPAM [Concomitant]
     Route: 065
  3. DECADRON [Suspect]
     Indication: CHEMOTHERAPY
     Route: 048
     Dates: start: 20100707
  4. METOPROLOL [Concomitant]
     Route: 065
  5. DECADRON [Suspect]
     Indication: MALIGNANT MELANOMA
     Route: 048
     Dates: start: 20100707
  6. DECADRON [Suspect]
     Route: 048
     Dates: start: 20100701

REACTIONS (9)
  - URINARY RETENTION [None]
  - METASTASES TO CENTRAL NERVOUS SYSTEM [None]
  - DIABETES MELLITUS [None]
  - SKIN CANCER [None]
  - ENCEPHALITIS [None]
  - MALIGNANT MELANOMA [None]
  - CONVULSION [None]
  - HEPATIC FAILURE [None]
  - LUNG CANCER METASTATIC [None]
